FAERS Safety Report 14331359 (Version 1)
Quarter: 2017Q4

REPORT INFORMATION
  Report Type: Spontaneous
  Country: BR (occurrence: BR)
  Receive Date: 20171228
  Receipt Date: 20171228
  Transmission Date: 20180321
  Serious: Yes (Other)
  Sender: FDA-Public Use
  Company Number: BR-ABBVIE-17P-020-2204176-00

PATIENT
  Sex: Male
  Weight: 112 kg

DRUGS (4)
  1. DEPAKENE [Suspect]
     Active Substance: VALPROIC ACID
     Route: 048
  2. DEPAKENE [Suspect]
     Active Substance: VALPROIC ACID
     Route: 048
  3. DEPAKENE [Suspect]
     Active Substance: VALPROIC ACID
     Indication: SEIZURE
     Route: 065
  4. DEPAKENE [Suspect]
     Active Substance: VALPROIC ACID
     Indication: SEIZURE
     Route: 048

REACTIONS (3)
  - Seizure [Recovered/Resolved]
  - Drug ineffective [Recovered/Resolved]
  - Product physical consistency issue [Unknown]
